FAERS Safety Report 6557122-9 (Version None)
Quarter: 2010Q1

REPORT INFORMATION
  Report Type: 
  Country: None (occurrence: None)
  Receive Date: 20100126
  Receipt Date: 20080717
  Transmission Date: 20100710
  Serious: Yes (Hospitalization)
  Sender: FDA-Public Use
  Company Number: 1-16415758

PATIENT
  Age: 32 Year
  Sex: Female

DRUGS (3)
  1. SOLODYN [Suspect]
     Indication: ACNE
     Dosage: 90 MG, ONCE NIGHTLY, ORAL
     Route: 048
     Dates: start: 20080130, end: 20080101
  2. AMOXICILLIN [Suspect]
     Indication: OROPHARYNGEAL PAIN
     Dosage: ORAL
     Route: 048
     Dates: start: 20080226, end: 20080101
  3. AMOXICILLIN [Suspect]
     Indication: RHINORRHOEA
     Dosage: ORAL
     Route: 048
     Dates: start: 20080226, end: 20080101

REACTIONS (12)
  - DEHYDRATION [None]
  - DRUG HYPERSENSITIVITY [None]
  - HAEMATOCRIT DECREASED [None]
  - HAEMOGLOBIN DECREASED [None]
  - INFECTIOUS MONONUCLEOSIS [None]
  - LYMPHADENOPATHY [None]
  - MICROSCOPIC POLYANGIITIS [None]
  - NAUSEA [None]
  - PLEURAL EFFUSION [None]
  - RENAL FAILURE ACUTE [None]
  - STEVENS-JOHNSON SYNDROME [None]
  - VOMITING [None]
